FAERS Safety Report 8557529-4 (Version None)
Quarter: 2012Q3

REPORT INFORMATION
  Report Type: 
  Country: None (occurrence: None)
  Receive Date: 20120801
  Receipt Date: 20120726
  Transmission Date: 20120928
  Serious: Yes (Death, Other)
  Sender: FDA-Public Use
  Company Number: US-PFIZER INC-2012145060

PATIENT
  Sex: Female
  Weight: 77.098 kg

DRUGS (1)
  1. REVATIO [Suspect]
     Indication: PULMONARY HYPERTENSION
     Dosage: UNK
     Route: 048
     Dates: start: 20060101

REACTIONS (5)
  - CORONARY ARTERY DISEASE [None]
  - RENAL FAILURE [None]
  - MYELODYSPLASTIC SYNDROME [None]
  - PULMONARY HYPERTENSION [None]
  - CARDIAC FAILURE [None]
